FAERS Safety Report 4688180-4 (Version None)
Quarter: 2005Q2

REPORT INFORMATION
  Report Type: 
  Country: None (occurrence: None)
  Receive Date: 20050609
  Receipt Date: 20050525
  Transmission Date: 20051028
  Serious: Yes (Death)
  Sender: FDA-Public Use
  Company Number: US015348

PATIENT
  Age: 22 Year
  Sex: Male

DRUGS (1)
  1. ACTIQ [Suspect]

REACTIONS (2)
  - DRUG INEFFECTIVE [None]
  - SELF-MEDICATION [None]
